FAERS Safety Report 17547370 (Version 1)
Quarter: 2020Q1

REPORT INFORMATION
  Report Type: Spontaneous
  Country: DE (occurrence: DE)
  Receive Date: 20200317
  Receipt Date: 20200317
  Transmission Date: 20200409
  Serious: Yes (Other)
  Sender: FDA-Public Use
  Company Number: DE-BEH-2020114341

PATIENT
  Age: 33 Year
  Sex: Male

DRUGS (7)
  1. PRIVIGEN [Suspect]
     Active Substance: HUMAN IMMUNOGLOBULIN G
     Dosage: 30 GRAM IN THE MORNING
     Route: 042
     Dates: start: 20200305, end: 20200305
  2. PRIVIGEN [Suspect]
     Active Substance: HUMAN IMMUNOGLOBULIN G
     Dosage: 30 GRAM IN THE EVENING
     Route: 042
     Dates: start: 20200302, end: 20200302
  3. PRIVIGEN [Suspect]
     Active Substance: HUMAN IMMUNOGLOBULIN G
     Dosage: 30 GRAM IN THE MORNING
     Route: 042
     Dates: start: 20200304, end: 20200304
  4. PRIVIGEN [Suspect]
     Active Substance: HUMAN IMMUNOGLOBULIN G
     Dosage: 30 GRAM IN THE EVENING
     Route: 042
     Dates: start: 20200303, end: 20200303
  5. PRIVIGEN [Suspect]
     Active Substance: HUMAN IMMUNOGLOBULIN G
     Dosage: 30 GRAM IN THE EVENING
     Route: 042
     Dates: start: 20200304, end: 20200304
  6. PRIVIGEN [Suspect]
     Active Substance: HUMAN IMMUNOGLOBULIN G
     Indication: CHRONIC INFLAMMATORY DEMYELINATING POLYRADICULONEUROPATHY
     Dosage: 2 GRAM PER KILOGRAM (190 G)
     Route: 042
     Dates: start: 20200302, end: 20200305
  7. PRIVIGEN [Suspect]
     Active Substance: HUMAN IMMUNOGLOBULIN G
     Dosage: 30 GRAM IN THE MORNING
     Route: 042
     Dates: start: 20200303, end: 20200303

REACTIONS (2)
  - Headache [Recovered/Resolved]
  - Extrasystoles [Not Recovered/Not Resolved]

NARRATIVE: CASE EVENT DATE: 20200303
